FAERS Safety Report 9044936 (Version 1)
Quarter: 2013Q1

REPORT INFORMATION
  Report Type: Spontaneous
  Country: JP (occurrence: JP)
  Receive Date: 20130130
  Receipt Date: 20130130
  Transmission Date: 20140127
  Serious: Yes (Hospitalization)
  Sender: FDA-Public Use
  Company Number: JP-GLAXOSMITHKLINE-B0863023A

PATIENT
  Sex: 0

DRUGS (3)
  1. PAXIL [Suspect]
     Indication: HEADACHE
     Dosage: 10MG PER DAY
     Route: 048
  2. PAXIL [Suspect]
     Indication: HEADACHE
     Route: 048
  3. PAXIL [Suspect]
     Indication: HEADACHE
     Dosage: 10MG PER DAY
     Route: 048

REACTIONS (5)
  - Abdominal pain upper [Unknown]
  - Feeling abnormal [Unknown]
  - Epistaxis [Unknown]
  - Restlessness [Unknown]
  - Akathisia [Unknown]
